FAERS Safety Report 16465814 (Version 1)
Quarter: 2019Q2

REPORT INFORMATION
  Report Type: Spontaneous
  Country: RS (occurrence: RS)
  Receive Date: 20190621
  Receipt Date: 20190621
  Transmission Date: 20190711
  Serious: Yes (Other)
  Sender: FDA-Public Use
  Company Number: RS-009507513-1906SRB008526

PATIENT
  Age: 1 Year
  Sex: Female
  Weight: 17 kg

DRUGS (2)
  1. SINGULAIR [Suspect]
     Active Substance: MONTELUKAST SODIUM
     Indication: ADENOIDAL HYPERTROPHY
  2. SINGULAIR [Suspect]
     Active Substance: MONTELUKAST SODIUM
     Indication: BRONCHIOLITIS
     Dosage: ORAL, 4 MG, ADD 1 SACHET TO SOLID MEAL IN THE EVENING BEFORE SLEEP
     Route: 048
     Dates: start: 20170615, end: 20170705

REACTIONS (2)
  - Sleep disorder [Recovered/Resolved]
  - Behaviour disorder [Recovered/Resolved]

NARRATIVE: CASE EVENT DATE: 20170705
